FAERS Safety Report 17970364 (Version 5)
Quarter: 2025Q3

REPORT INFORMATION
  Report Type: Spontaneous
  Country: US (occurrence: US)
  Receive Date: 20200701
  Receipt Date: 20250828
  Transmission Date: 20251021
  Serious: Yes (Other)
  Sender: GILEAD
  Company Number: US-GILEAD-2020-0475979

PATIENT
  Age: 44 Year
  Sex: Female

DRUGS (6)
  1. VIREAD [Suspect]
     Active Substance: TENOFOVIR DISOPROXIL FUMARATE
     Indication: HIV infection
     Route: 048
     Dates: start: 200911, end: 201508
  2. VIREAD [Suspect]
     Active Substance: TENOFOVIR DISOPROXIL FUMARATE
     Route: 048
     Dates: start: 20130211, end: 20160107
  3. TRUVADA [Suspect]
     Active Substance: EMTRICITABINE\TENOFOVIR DISOPROXIL FUMARATE
     Indication: HIV infection
     Route: 048
     Dates: start: 200911, end: 201508
  4. TRUVADA [Suspect]
     Active Substance: EMTRICITABINE\TENOFOVIR DISOPROXIL FUMARATE
     Route: 048
     Dates: start: 20091001, end: 20151031
  5. TRUVADA [Suspect]
     Active Substance: EMTRICITABINE\TENOFOVIR DISOPROXIL FUMARATE
     Route: 048
     Dates: start: 200911, end: 20180731
  6. DESCOVY [Concomitant]
     Active Substance: EMTRICITABINE\TENOFOVIR ALAFENAMIDE FUMARATE
     Indication: HIV infection

REACTIONS (11)
  - Renal injury [Unknown]
  - Chronic kidney disease [Unknown]
  - Osteonecrosis [Unknown]
  - Multiple fractures [Unknown]
  - Renal failure [Not Recovered/Not Resolved]
  - Acute kidney injury [Not Recovered/Not Resolved]
  - Renal impairment [Not Recovered/Not Resolved]
  - Nephropathy [Not Recovered/Not Resolved]
  - Skeletal injury [Not Recovered/Not Resolved]
  - Bone density decreased [Unknown]
  - Bone loss [Unknown]

NARRATIVE: CASE EVENT DATE: 20140217
